FAERS Safety Report 11418768 (Version 31)
Quarter: 2016Q3

REPORT INFORMATION
  Report Type: Spontaneous
  Country: CN (occurrence: CN)
  Receive Date: 20150826
  Receipt Date: 20160725
  Transmission Date: 20161109
  Serious: Yes (Hospitalization, Other)
  Sender: FDA-Public Use
  Company Number: CN-009507513-1508CHN010667

PATIENT
  Age: 68 Year
  Sex: Male
  Weight: 66 kg

DRUGS (21)
  1. DOCETAXEL. [Concomitant]
     Active Substance: DOCETAXEL
     Indication: CHEMOTHERAPY
     Dosage: 100 MG, TREATMENT REGIMEN: DP, TREATMENT CYCLE: 1/UNK
     Route: 041
     Dates: start: 20150813, end: 20150813
  2. PALONOSETRON HYDROCHLORIDE. [Concomitant]
     Active Substance: PALONOSETRON HYDROCHLORIDE
     Indication: PROPHYLAXIS OF NAUSEA AND VOMITING
     Dosage: 0.25 MG, QD
     Route: 042
     Dates: start: 20150813, end: 20150813
  3. DEXAMETHASONE. [Concomitant]
     Active Substance: DEXAMETHASONE
     Indication: PROPHYLAXIS OF NAUSEA AND VOMITING
     Dosage: TOTAL DAILY DOSE: 3.75MG, FREQUENCY: BID
     Route: 048
     Dates: start: 20150812, end: 20150812
  4. AMINO ACIDS (UNSPECIFIED) [Concomitant]
     Active Substance: AMINO ACIDS
     Indication: PROTEIN DEFICIENCY
     Dosage: 50 G, QD
     Route: 041
     Dates: start: 20150813, end: 20150814
  5. XIAOAIPING [Concomitant]
     Dosage: 60 ML/CC, QD
     Route: 041
     Dates: start: 20150817, end: 20150817
  6. AMIFOSTINE. [Concomitant]
     Active Substance: AMIFOSTINE
     Indication: PROPHYLAXIS OF NAUSEA AND VOMITING
     Dosage: 400 MG, QD
     Route: 041
     Dates: start: 20150819, end: 20150824
  7. EMEND [Suspect]
     Active Substance: APREPITANT
     Dosage: 80 MG, QD (DAY 3)
     Route: 048
     Dates: start: 20150815, end: 20150815
  8. METOCLOPRAMIDE HYDROCHLORIDE. [Concomitant]
     Active Substance: METOCLOPRAMIDE HYDROCHLORIDE
     Indication: PROPHYLAXIS OF NAUSEA AND VOMITING
     Dosage: 10 MG, QD
     Route: 030
     Dates: start: 20150813, end: 20150815
  9. CISPLATIN. [Concomitant]
     Active Substance: CISPLATIN
     Indication: CHEMOTHERAPY
     Dosage: 120 MG, TREATMENT REGIMEN: DP, TREATMENT CYCLE: 1/UNK
     Route: 041
     Dates: start: 20150813, end: 20150813
  10. XIAOAIPING [Concomitant]
     Indication: NEOPLASM MALIGNANT
     Dosage: TOTAL DAILY DOSE: 60 ML/CC, QD
     Route: 041
     Dates: start: 20150807, end: 20150812
  11. AMIFOSTINE. [Concomitant]
     Active Substance: AMIFOSTINE
     Indication: PROPHYLAXIS
     Dosage: 400 MG, QD
     Route: 041
     Dates: start: 20150810, end: 20150812
  12. FUROSEMIDE. [Concomitant]
     Active Substance: FUROSEMIDE
     Indication: DIURETIC THERAPY
     Dosage: 20 MG, QD (ALSO REPORTED AS INJECTION)
     Route: 048
     Dates: start: 20150810, end: 20150812
  13. POLYENE PHOSPHATIDYL CHOLINE [Concomitant]
     Indication: PROPHYLAXIS
     Dosage: 1368 MG DAILY, TID
     Route: 048
     Dates: start: 20150807, end: 20150812
  14. EMEND [Suspect]
     Active Substance: APREPITANT
     Indication: PROPHYLAXIS OF NAUSEA AND VOMITING
     Dosage: 125 MG, ONCE (DAY 1)
     Route: 048
     Dates: start: 20150813, end: 20150813
  15. EMEND [Suspect]
     Active Substance: APREPITANT
     Dosage: 80 MG, QD (DAY 2)
     Route: 048
     Dates: start: 20150814, end: 20150814
  16. GLUTATHIONE [Concomitant]
     Active Substance: GLUTATHIONE
     Indication: PROPHYLAXIS
     Dosage: 1200 MG, QD
     Route: 041
     Dates: start: 20150808, end: 20150812
  17. ESTAZOLAM. [Concomitant]
     Active Substance: ESTAZOLAM
     Indication: SLEEP DISORDER
  18. LANSOPRAZOLE. [Concomitant]
     Active Substance: LANSOPRAZOLE
     Indication: PROPHYLAXIS
     Dosage: 30 MG, QD
     Route: 041
     Dates: start: 20150813, end: 20150815
  19. DEXAMETHASONE. [Concomitant]
     Active Substance: DEXAMETHASONE
     Indication: PROPHYLAXIS OF NAUSEA AND VOMITING
     Dosage: 6 MG, QD
     Route: 042
     Dates: start: 20150813, end: 20150813
  20. GLUTATHIONE [Concomitant]
     Active Substance: GLUTATHIONE
     Dosage: 1200 MG, QD
     Route: 042
     Dates: start: 20150813, end: 20150815
  21. ESTAZOLAM. [Concomitant]
     Active Substance: ESTAZOLAM
     Indication: SEDATIVE THERAPY
     Dosage: 2 MG, HS (QN)
     Route: 048
     Dates: start: 20150813, end: 20150823

REACTIONS (10)
  - Aspartate aminotransferase increased [Recovered/Resolved]
  - Vomiting [Recovered/Resolved]
  - Nausea [Recovered/Resolved]
  - Productive cough [Recovered/Resolved]
  - Blood potassium decreased [Recovered/Resolved]
  - Cough [Recovered/Resolved]
  - Bone marrow failure [Recovered/Resolved]
  - Pyrexia [Recovered/Resolved]
  - Alanine aminotransferase increased [Recovered/Resolved]
  - Decreased appetite [Recovered/Resolved]

NARRATIVE: CASE EVENT DATE: 20150813
